FAERS Safety Report 4979326-9 (Version None)
Quarter: 2006Q2

REPORT INFORMATION
  Report Type: 
  Country: None (occurrence: None)
  Receive Date: 20060418
  Receipt Date: 20060406
  Transmission Date: 20061013
  Serious: Yes (Hospitalization, Congenital Anomaly)
  Sender: FDA-Public Use
  Company Number: FR200604000879

PATIENT
  Age: 1 Day
  Sex: Female

DRUGS (2)
  1. ZYPREXA [Suspect]
     Dosage: TRANSPLACENTAL
     Route: 064
     Dates: start: 20040301, end: 20040510
  2. TEGRETOL [Concomitant]

REACTIONS (3)
  - DRUG EXPOSURE DURING PREGNANCY [None]
  - PILONIDAL CYST CONGENITAL [None]
  - TRANSMISSION OF DRUG VIA SEMEN [None]
